FAERS Safety Report 20242768 (Version 2)
Quarter: 2022Q2

REPORT INFORMATION
  Report Type: Spontaneous
  Country: US (occurrence: US)
  Receive Date: 20211228
  Receipt Date: 20220519
  Transmission Date: 20220721
  Serious: Yes (Other)
  Sender: FDA-Public Use
  Company Number: US-COOPERSURGICAL, INC.-US-2021CPS001063

PATIENT
  Age: 30 Year
  Sex: Female
  Weight: 86.621 kg

DRUGS (1)
  1. PARAGARD T 380A [Suspect]
     Active Substance: COPPER
     Indication: Contraception
     Dosage: UNK
     Route: 015
     Dates: start: 20160210

REACTIONS (8)
  - Injury associated with device [Unknown]
  - Deformity [Unknown]
  - Device breakage [Unknown]
  - Complication of device removal [Unknown]
  - Foreign body in reproductive tract [Unknown]
  - Anxiety [Unknown]
  - Abdominal discomfort [Unknown]
  - Pain [Unknown]

NARRATIVE: CASE EVENT DATE: 20210414
